FAERS Safety Report 25424886 (Version 1)
Quarter: 2025Q2

REPORT INFORMATION
  Report Type: Spontaneous
  Country: CN (occurrence: CN)
  Receive Date: 20250611
  Receipt Date: 20250611
  Transmission Date: 20250716
  Serious: Yes (Hospitalization)
  Sender: NOVARTIS
  Company Number: CN-002147023-NVSC2025CN091223

PATIENT
  Age: 18 Year
  Sex: Male
  Weight: 69 kg

DRUGS (1)
  1. CARBAMAZEPINE [Suspect]
     Active Substance: CARBAMAZEPINE
     Indication: Epilepsy
     Dosage: 100 MG, BID
     Route: 048
     Dates: start: 20250518, end: 20250531

REACTIONS (7)
  - Dermatitis allergic [Recovering/Resolving]
  - Eosinophil count increased [Recovering/Resolving]
  - Blood triglycerides increased [Recovering/Resolving]
  - Myocardial necrosis marker increased [Recovering/Resolving]
  - Blood homocysteine increased [Unknown]
  - Papule [Recovering/Resolving]
  - Pruritus [Recovering/Resolving]

NARRATIVE: CASE EVENT DATE: 20250521
